FAERS Safety Report 22147403 (Version 2)
Quarter: 2023Q2

REPORT INFORMATION
  Report Type: Spontaneous
  Country: US (occurrence: None)
  Receive Date: 20230328
  Receipt Date: 20230405
  Transmission Date: 20230721
  Serious: No
  Sender: FDA-Public Use
  Company Number: 2023A069155

PATIENT

DRUGS (1)
  1. NEXIUM [Suspect]
     Active Substance: ESOMEPRAZOLE MAGNESIUM
     Indication: Gastrooesophageal reflux disease
     Route: 048

REACTIONS (5)
  - Gastrooesophageal reflux disease [Unknown]
  - Visual impairment [Unknown]
  - Product use issue [Unknown]
  - Off label use [Unknown]
  - Product packaging quantity issue [Unknown]
